FAERS Safety Report 8489922-2 (Version None)
Quarter: 2012Q3

REPORT INFORMATION
  Report Type: 
  Country: None (occurrence: None)
  Receive Date: 20120705
  Receipt Date: 20120702
  Transmission Date: 20120928
  Serious: No
  Sender: FDA-Public Use
  Company Number: US-PFIZER INC-2012158887

PATIENT
  Sex: Female
  Weight: 52.608 kg

DRUGS (1)
  1. PREMARIN [Suspect]
     Indication: MENOPAUSAL SYMPTOMS
     Dosage: UNK, 1X/DAY
     Route: 048
     Dates: start: 19980101, end: 19980801

REACTIONS (1)
  - DRUG INTOLERANCE [None]
